FAERS Safety Report 8619954-2 (Version None)
Quarter: 2012Q3

REPORT INFORMATION
  Report Type: 
  Country: None (occurrence: None)
  Receive Date: 20120816
  Receipt Date: 20120816
  Transmission Date: 20120928
  Serious: No
  Sender: FDA-Public Use
  Company Number: None

PATIENT
  Age: 22 Year
  Sex: Female
  Weight: 55.7924 kg

DRUGS (2)
  1. CALDOLOR [Suspect]
     Indication: PROCEDURAL PAIN
     Dosage: 400 MG ONCE IV
     Route: 042
     Dates: start: 20120529, end: 20120529
  2. CALDOLOR [Suspect]
     Indication: ABDOMINAL PAIN
     Dosage: 400 MG ONCE IV
     Route: 042
     Dates: start: 20120529, end: 20120529

REACTIONS (1)
  - PAIN IN EXTREMITY [None]
